FAERS Safety Report 10727494 (Version 1)
Quarter: 2015Q1

REPORT INFORMATION
  Report Type: Spontaneous
  Country: US (occurrence: US)
  Receive Date: 20150121
  Receipt Date: 20150121
  Transmission Date: 20150721
  Serious: Yes (Other)
  Sender: FDA-Public Use
  Company Number: US-BAYER-2015-005943

PATIENT
  Sex: Female

DRUGS (2)
  1. ONE A DAY WOMEN^S PETITES [Suspect]
     Active Substance: MINERALS\VITAMINS
     Dosage: 2 DF, QD
     Route: 048
     Dates: start: 201501, end: 201501
  2. ALEVE [Suspect]
     Active Substance: NAPROXEN SODIUM
     Indication: ARTHRITIS
     Dosage: 1-2 DF, QD
     Route: 048
     Dates: start: 2012, end: 2012

REACTIONS (4)
  - Medication error [Unknown]
  - Foreign body [Recovered/Resolved]
  - Acute kidney injury [Recovered/Resolved]
  - Incorrect drug administration duration [Unknown]

NARRATIVE: CASE EVENT DATE: 2012
